FAERS Safety Report 14367598 (Version 1)
Quarter: 2018Q1

REPORT INFORMATION
  Report Type: Spontaneous
  Country: FR (occurrence: FR)
  Receive Date: 20180109
  Receipt Date: 20180109
  Transmission Date: 20180509
  Serious: Yes (Hospitalization, Other)
  Sender: FDA-Public Use
  Company Number: FR-MYLANLABS-2017M1083001

PATIENT
  Age: 79 Year
  Sex: Male

DRUGS (4)
  1. PYRIDOSTIGMINE [Suspect]
     Active Substance: PYRIDOSTIGMINE
     Indication: NON-SMALL CELL LUNG CANCER
     Dosage: 60 MG
     Route: 065
  2. CARBOPLATIN. [Suspect]
     Active Substance: CARBOPLATIN
     Indication: NON-SMALL CELL LUNG CANCER
     Dosage: 4 CYCLES
     Route: 065
  3. PACLITAXEL. [Suspect]
     Active Substance: PACLITAXEL
     Indication: NON-SMALL CELL LUNG CANCER
     Dosage: 4 CYCLES
     Route: 065
  4. NIVOLUMAB [Suspect]
     Active Substance: NIVOLUMAB
     Indication: NON-SMALL CELL LUNG CANCER
     Dosage: UNK
     Route: 065

REACTIONS (6)
  - Myositis [Recovered/Resolved]
  - Myasthenia gravis [Recovering/Resolving]
  - Peripheral sensory neuropathy [Recovering/Resolving]
  - Hepatocellular injury [Recovering/Resolving]
  - Drug-induced liver injury [Recovering/Resolving]
  - Muscle spasms [Recovering/Resolving]
